FAERS Safety Report 12416014 (Version 2)
Quarter: 2016Q2

REPORT INFORMATION
  Report Type: Report from Study
  Country: FR (occurrence: FR)
  Receive Date: 20160530
  Receipt Date: 20160531
  Transmission Date: 20160815
  Serious: Yes (Hospitalization, Other)
  Sender: FDA-Public Use
  Company Number: FR-ROCHE-1748756

PATIENT
  Age: 45 Year
  Sex: Male

DRUGS (4)
  1. RANIBIZUMAB [Suspect]
     Active Substance: RANIBIZUMAB
     Indication: MACULAR OEDEMA
     Dosage: RIGHT EYE?MOST RECENT DOSE: 19/OCT/2015
     Route: 050
     Dates: start: 20150416
  2. RANIBIZUMAB [Suspect]
     Active Substance: RANIBIZUMAB
     Indication: RETINAL VEIN OCCLUSION
     Dosage: RIGHT EYE
     Route: 050
     Dates: start: 20150511, end: 20150511
  3. RANIBIZUMAB [Suspect]
     Active Substance: RANIBIZUMAB
     Dosage: RIGHT EYE
     Route: 050
     Dates: start: 20151019, end: 20151019
  4. RANIBIZUMAB [Suspect]
     Active Substance: RANIBIZUMAB
     Dosage: RIGHT EYE
     Route: 050
     Dates: start: 20150616

REACTIONS (12)
  - Haemorrhage [Recovered/Resolved]
  - Punctate keratitis [Recovered/Resolved]
  - Chest pain [Not Recovered/Not Resolved]
  - Headache [Not Recovered/Not Resolved]
  - Cognitive disorder [Not Recovered/Not Resolved]
  - Back pain [Not Recovered/Not Resolved]
  - Eye pain [Not Recovered/Not Resolved]
  - Sinusitis [Not Recovered/Not Resolved]
  - Inappropriate schedule of drug administration [Unknown]
  - Mobility decreased [Not Recovered/Not Resolved]
  - Vision blurred [Not Recovered/Not Resolved]
  - Depression [Not Recovered/Not Resolved]

NARRATIVE: CASE EVENT DATE: 20150710
